FAERS Safety Report 23249220 (Version 1)
Quarter: 2023Q4

REPORT INFORMATION
  Report Type: Other
  Country: CA (occurrence: CA)
  Receive Date: 20231201
  Receipt Date: 20231201
  Transmission Date: 20240110
  Serious: Yes (Hospitalization, Other)
  Sender: FDA-Public Use
  Company Number: CA-APOTEX-2023AP016995

PATIENT
  Age: 53 Year
  Sex: Female

DRUGS (22)
  1. LORAZEPAM [Interacting]
     Active Substance: LORAZEPAM
     Indication: Product used for unknown indication
     Dosage: 1 MILLIGRAM, QD
     Route: 065
  2. VARENICLINE [Interacting]
     Active Substance: VARENICLINE
     Indication: Product used for unknown indication
     Dosage: 1 MILLIGRAM, BID
     Route: 065
  3. VARENICLINE [Interacting]
     Active Substance: VARENICLINE
     Dosage: 0.5 MILLIGRAM, QD
     Route: 065
  4. VENLAFAXINE [Interacting]
     Active Substance: VENLAFAXINE HYDROCHLORIDE
     Indication: Product used for unknown indication
     Dosage: 150 MILLIGRAM
     Route: 065
  5. BUDESONIDE\FORMOTEROL FUMARATE [Interacting]
     Active Substance: BUDESONIDE\FORMOTEROL FUMARATE
     Indication: Product used for unknown indication
     Dosage: 6 MICROGRAM, BID
     Route: 065
  6. BUDESONIDE\FORMOTEROL FUMARATE [Interacting]
     Active Substance: BUDESONIDE\FORMOTEROL FUMARATE
     Dosage: 200 MICROGRAM, BID
     Route: 065
  7. .ALPHA.-TOCOPHEROL, D- [Interacting]
     Active Substance: .ALPHA.-TOCOPHEROL, D-
     Indication: Product used for unknown indication
     Dosage: 7.5 MILLIGRAM
     Route: 048
  8. DOCONEXENT [Interacting]
     Active Substance: DOCONEXENT
     Indication: Product used for unknown indication
     Dosage: 120 MILLIGRAM, BID
     Route: 048
  9. ICOSAPENT [Interacting]
     Active Substance: ICOSAPENT
     Indication: Product used for unknown indication
     Dosage: 180 MILLIGRAM, BID
     Route: 048
  10. ERGOCALCIFEROL [Interacting]
     Active Substance: ERGOCALCIFEROL
     Indication: Product used for unknown indication
     Dosage: 1000 INTERNATIONAL UNIT, QD
     Route: 048
  11. ESTRADIOL [Interacting]
     Active Substance: ESTRADIOL
     Indication: Product used for unknown indication
     Dosage: 50 MICROGRAM, QD
     Route: 062
  12. LACTOBACILLUS ACIDOPHILUS [Interacting]
     Active Substance: LACTOBACILLUS ACIDOPHILUS
     Indication: Product used for unknown indication
     Dosage: UNK, 1 EVERY 0.3 DAYS
     Route: 048
  13. LACTOBACILLUS CASEI [Interacting]
     Active Substance: LACTOBACILLUS CASEI
     Indication: Product used for unknown indication
     Dosage: UNK, 1 EVERY 0.3 DAYS
     Route: 065
  14. LACTOBACILLUS RHAMNOSUS [Interacting]
     Active Substance: LACTOBACILLUS RHAMNOSUS
     Indication: Product used for unknown indication
     Dosage: UNK, 1 EVERY 0.3 DAYS
     Route: 065
  15. LINOLEIC ACID [Interacting]
     Active Substance: LINOLEIC ACID
     Indication: Product used for unknown indication
     Dosage: UNK, 1 EVERY 0.3 DAYS
     Route: 048
  16. MSM [Interacting]
     Active Substance: DIMETHYL SULFONE
     Indication: Product used for unknown indication
     Dosage: 1000 MILLIGRAM
     Route: 065
  17. PROGESTERONE [Interacting]
     Active Substance: PROGESTERONE
     Indication: Product used for unknown indication
     Dosage: 100 MILLIGRAM, QD
     Route: 065
  18. SOMATROPIN [Interacting]
     Active Substance: SOMATROPIN
     Indication: Product used for unknown indication
     Dosage: UNK
     Route: 065
  19. THIOCTIC ACID [Interacting]
     Active Substance: THIOCTIC ACID
     Indication: Product used for unknown indication
     Dosage: 3.75 MILLIGRAM
     Route: 065
  20. UBIDECARENONE [Interacting]
     Active Substance: UBIDECARENONE
     Indication: Product used for unknown indication
     Dosage: 3.75 MILLIGRAM
     Route: 065
  21. VITAMIN A [Interacting]
     Active Substance: VITAMIN A
     Indication: Product used for unknown indication
     Dosage: 188 MILLIGRAM, BID
     Route: 065
  22. VITAMIN C [Interacting]
     Active Substance: ASCORBIC ACID
     Indication: Product used for unknown indication
     Dosage: 15 MILLIGRAM, BID
     Route: 048

REACTIONS (6)
  - Drug interaction [Unknown]
  - Drug-induced liver injury [Unknown]
  - Hepatic cirrhosis [Unknown]
  - Hepatic encephalopathy [Unknown]
  - Hepatic necrosis [Unknown]
  - Hepatotoxicity [Unknown]
